FAERS Safety Report 10100763 (Version 1)
Quarter: 2014Q2

REPORT INFORMATION
  Report Type: Spontaneous
  Country: US (occurrence: US)
  Receive Date: 20140423
  Receipt Date: 20140423
  Transmission Date: 20141212
  Serious: Yes (Other)
  Sender: FDA-Public Use
  Company Number: CHPA2014US005566

PATIENT
  Age: 14 Year
  Sex: Male

DRUGS (1)
  1. LAMISIL AT CONTINUOUS SPRAY, ATHLETE^S FOOT [Suspect]
     Indication: TINEA PEDIS
     Dosage: UNK, BID
     Route: 061
     Dates: start: 20140414, end: 20140416

REACTIONS (5)
  - Rash pustular [Not Recovered/Not Resolved]
  - Hypersensitivity [Not Recovered/Not Resolved]
  - Erythema [Not Recovered/Not Resolved]
  - Tinea pedis [Not Recovered/Not Resolved]
  - Condition aggravated [Not Recovered/Not Resolved]
